FAERS Safety Report 9777816 (Version 1)
Quarter: 2013Q4

REPORT INFORMATION
  Report Type: Spontaneous
  Country: US (occurrence: US)
  Receive Date: 20131223
  Receipt Date: 20131223
  Transmission Date: 20140711
  Serious: No
  Sender: FDA-Public Use
  Company Number: US-BIOGENIDEC-2013BI120884

PATIENT
  Age: 46 Year
  Sex: Female

DRUGS (1)
  1. TYSABRI [Suspect]
     Indication: MULTIPLE SCLEROSIS
     Route: 042
     Dates: start: 20131213

REACTIONS (4)
  - Disorientation [Recovered/Resolved]
  - Balance disorder [Not Recovered/Not Resolved]
  - Aphasia [Not Recovered/Not Resolved]
  - Somnolence [Not Recovered/Not Resolved]
